FAERS Safety Report 8447941-6 (Version None)
Quarter: 2012Q2

REPORT INFORMATION
  Report Type: 
  Country: None (occurrence: None)
  Receive Date: 20120619
  Receipt Date: 20120615
  Transmission Date: 20120825
  Serious: Yes (Hospitalization)
  Sender: FDA-Public Use
  Company Number: PHHO2012CH006585

PATIENT
  Sex: Male
  Weight: 75.5 kg

DRUGS (18)
  1. CORDARONE [Concomitant]
     Dosage: 100 MG, DAILY
     Dates: start: 20120522
  2. MARCUMAR [Concomitant]
     Dosage: 3 MG, UNK
     Dates: start: 20120522
  3. LAXOBERON [Concomitant]
     Indication: CONSTIPATION
     Dosage: 10 DRP, DAILY
     Dates: start: 20111102, end: 20120422
  4. ALISKIREN [Suspect]
     Indication: CARDIAC FAILURE
     Dosage: UNK
     Route: 048
     Dates: start: 20110316, end: 20120424
  5. MARCUMAR [Concomitant]
     Indication: ATRIAL FIBRILLATION
     Dosage: 3 MG, UNK
     Dates: start: 20080222, end: 20120422
  6. ASPIRIN [Concomitant]
     Dosage: 100 MG, DAILY
     Dates: start: 20120522
  7. TORSEMIDE [Concomitant]
     Indication: CARDIAC FAILURE
     Dosage: 30 MG, DAILY
     Dates: start: 20080222, end: 20120422
  8. ATORVASTATIN CALCIUM [Concomitant]
     Indication: CORONARY ARTERY DISEASE
     Dosage: 40 MG, DAILY
     Dates: start: 20080222, end: 20120422
  9. ALLOPURINOL [Concomitant]
     Dosage: 150 MG, DAILY
     Dates: start: 20120422
  10. ALISKIREN [Suspect]
     Dosage: UNK
     Route: 048
     Dates: start: 20120425
  11. ATORVASTATIN CALCIUM [Concomitant]
     Dosage: 40 MG, UNK
     Dates: start: 20120522
  12. LAXOBERON [Concomitant]
     Dosage: 10 DRP, DAILY
     Dates: start: 20120604
  13. ENALAPRIL MALEATE [Suspect]
     Indication: CARDIAC FAILURE
     Dosage: UNK
     Route: 048
     Dates: start: 20110316, end: 20120424
  14. TORSEMIDE [Concomitant]
     Dosage: 30 MG, DAILY
     Dates: start: 20120526
  15. ALLOPURINOL [Concomitant]
     Indication: GOUT
     Dosage: 150 MG, DAILY
     Dates: start: 20090804, end: 20120422
  16. ENALAPRIL MALEATE [Suspect]
     Dosage: UNK
     Route: 048
     Dates: start: 20120425
  17. ASPIRIN [Concomitant]
     Indication: CORONARY ARTERY DISEASE
     Dosage: 100 MG, DAILY
     Dates: start: 20010222, end: 20120422
  18. CORDARONE [Concomitant]
     Indication: CARDIAC FAILURE
     Dosage: 100 MG, DAILY
     Dates: start: 20120201, end: 20120422

REACTIONS (2)
  - RIGHT VENTRICULAR FAILURE [None]
  - RENAL FAILURE [None]
